FAERS Safety Report 18423606 (Version 1)
Quarter: 2020Q4

REPORT INFORMATION
  Report Type: Spontaneous
  Country: PL (occurrence: PL)
  Receive Date: 20201024
  Receipt Date: 20201024
  Transmission Date: 20210114
  Serious: Yes (Other)
  Sender: FDA-Public Use
  Company Number: PL-ACCORD-206041

PATIENT
  Age: 72 Year
  Sex: Female

DRUGS (3)
  1. DOCETAXEL. [Suspect]
     Active Substance: DOCETAXEL
     Indication: INTESTINAL METASTASIS
  2. PERTUZUMAB. [Suspect]
     Active Substance: PERTUZUMAB
     Indication: INTESTINAL METASTASIS
  3. TRASTUZUMAB. [Suspect]
     Active Substance: TRASTUZUMAB
     Indication: INTESTINAL METASTASIS

REACTIONS (2)
  - Polyneuropathy [Unknown]
  - Off label use [Unknown]
